FAERS Safety Report 4805881-5 (Version None)
Quarter: 2005Q4

REPORT INFORMATION
  Report Type: 
  Country: None (occurrence: None)
  Receive Date: 20051018
  Receipt Date: 20051018
  Transmission Date: 20060501
  Serious: No
  Sender: FDA-Public Use
  Company Number: None

PATIENT
  Age: 51 Year
  Sex: Male
  Weight: 117.9352 kg

DRUGS (1)
  1. VIOXX [Suspect]
     Indication: ANTIINFLAMMATORY THERAPY
     Dosage: DAILY PO
     Route: 048
     Dates: start: 20010509, end: 20020610

REACTIONS (9)
  - ANXIETY [None]
  - ATRIAL FIBRILLATION [None]
  - BLOOD PRESSURE INCREASED [None]
  - CARDIAC DISORDER [None]
  - DRUG INEFFECTIVE [None]
  - HEART RATE INCREASED [None]
  - NAUSEA [None]
  - ROAD TRAFFIC ACCIDENT [None]
  - SURGERY [None]
